FAERS Safety Report 7019242-4 (Version None)
Quarter: 2010Q3

REPORT INFORMATION
  Report Type: 
  Country: None (occurrence: None)
  Receive Date: 20100928
  Receipt Date: 20100921
  Transmission Date: 20110219
  Serious: Yes (Death, Hospitalization)
  Sender: FDA-Public Use
  Company Number: TW-AMGEN-QUU441192

PATIENT
  Sex: Male
  Weight: 77 kg

DRUGS (1)
  1. ENBREL [Suspect]
     Indication: RHEUMATOID ARTHRITIS
     Route: 058
     Dates: start: 20100330, end: 20100706

REACTIONS (2)
  - HEPATIC CIRRHOSIS [None]
  - HEPATITIS B [None]
